FAERS Safety Report 7085580-2 (Version None)
Quarter: 2010Q4

REPORT INFORMATION
  Report Type: 
  Country: None (occurrence: None)
  Receive Date: 20101027
  Receipt Date: 20101014
  Transmission Date: 20110411
  Serious: Yes (Other)
  Sender: FDA-Public Use
  Company Number: ACO_02422_2010

PATIENT
  Sex: Female
  Weight: 61.2356 kg

DRUGS (8)
  1. AMPYRA [Suspect]
     Indication: GAIT DISTURBANCE
     Dosage: (10 MG QD ORAL)
     Route: 048
     Dates: start: 20100924
  2. BETASERON [Suspect]
     Dosage: (0.3 MG, EVERY OTHER DAY INTRAMUSCULAR)
     Route: 030
  3. BACLOFEN [Concomitant]
  4. NIFEDIPINE [Concomitant]
  5. LORAZEPAM [Concomitant]
  6. DAILY VITAMINS [Concomitant]
  7. FLAXSEED OIL [Concomitant]
  8. CALCIUM [Concomitant]

REACTIONS (9)
  - ASTHENIA [None]
  - CYANOPSIA [None]
  - DEPRESSION [None]
  - INSOMNIA [None]
  - PRURITUS GENERALISED [None]
  - RASH [None]
  - SOMNOLENCE [None]
  - THERAPEUTIC RESPONSE UNEXPECTED [None]
  - VISION BLURRED [None]
